FAERS Safety Report 4823270-4 (Version None)
Quarter: 2005Q4

REPORT INFORMATION
  Report Type: 
  Country: None (occurrence: None)
  Receive Date: 20051107
  Receipt Date: 20051025
  Transmission Date: 20060501
  Serious: Yes (Hospitalization)
  Sender: FDA-Public Use
  Company Number: 2005146743

PATIENT
  Age: 50 Year
  Sex: Male

DRUGS (4)
  1. ATORVASTATIN CALCIUM [Suspect]
     Indication: HYPERLIPIDAEMIA
     Dosage: ORAL
     Route: 048
     Dates: end: 20050901
  2. MITOMYCIN [Concomitant]
  3. COVERSUM (PERINDOPRIL) [Concomitant]
  4. BISOPROLOL FUMARATE [Concomitant]

REACTIONS (3)
  - BLADDER CANCER [None]
  - HEPATITIS CHOLESTATIC [None]
  - HEPATITIS TOXIC [None]
